FAERS Safety Report 21054871 (Version 2)
Quarter: 2022Q3

REPORT INFORMATION
  Report Type: Spontaneous
  Country: ES (occurrence: ES)
  Receive Date: 20220707
  Receipt Date: 20220810
  Transmission Date: 20221027
  Serious: Yes (Hospitalization)
  Sender: FDA-Public Use
  Company Number: ES-TEVA-2022-ES-2052405

PATIENT
  Age: 13 Year

DRUGS (3)
  1. DULOXETINE [Suspect]
     Active Substance: DULOXETINE
     Indication: Suicide attempt
     Route: 065
  2. TRAMADOL [Suspect]
     Active Substance: TRAMADOL
     Indication: Product used for unknown indication
     Route: 065
  3. MORPHINE [Suspect]
     Active Substance: MORPHINE
     Indication: Suicide attempt
     Dosage: DELAYED-RELEASE
     Route: 065

REACTIONS (13)
  - Abdominal pain [Recovering/Resolving]
  - Vomiting [Recovering/Resolving]
  - Headache [Recovering/Resolving]
  - Somnolence [Recovering/Resolving]
  - Dysuria [Recovering/Resolving]
  - Bradyphrenia [Recovering/Resolving]
  - Miosis [Recovering/Resolving]
  - Respiratory depression [Recovering/Resolving]
  - Troponin I increased [Recovering/Resolving]
  - Intentional overdose [Unknown]
  - Cardiotoxicity [Recovering/Resolving]
  - Hyperamylasaemia [Recovering/Resolving]
  - Toxicity to various agents [Recovering/Resolving]
